FAERS Safety Report 12069968 (Version 2)
Quarter: 2016Q2

REPORT INFORMATION
  Report Type: Report from Study
  Country: US (occurrence: US)
  Receive Date: 20160211
  Receipt Date: 20160603
  Transmission Date: 20160815
  Serious: Yes (Other)
  Sender: FDA-Public Use
  Company Number: US-ALEXION PHARMACEUTICALS INC-A201600630

PATIENT
  Sex: Female

DRUGS (1)
  1. SOLIRIS [Suspect]
     Active Substance: ECULIZUMAB
     Indication: PAROXYSMAL NOCTURNAL HAEMOGLOBINURIA
     Route: 042

REACTIONS (6)
  - Migraine [Not Recovered/Not Resolved]
  - Aplastic anaemia [Not Recovered/Not Resolved]
  - Activities of daily living impaired [Unknown]
  - Malaise [Unknown]
  - Depression [Unknown]
  - Apparent death [Unknown]
